FAERS Safety Report 16715204 (Version 1)
Quarter: 2019Q3

REPORT INFORMATION
  Report Type: Spontaneous
  Country: SA (occurrence: SA)
  Receive Date: 20190819
  Receipt Date: 20190819
  Transmission Date: 20191005
  Serious: Yes (Hospitalization, Other)
  Sender: FDA-Public Use
  Company Number: SA-ACCORD-151740

PATIENT
  Age: 56 Year
  Sex: Male

DRUGS (2)
  1. PREDNISOLONE. [Suspect]
     Active Substance: PREDNISOLONE
     Indication: IMMUNOSUPPRESSANT DRUG THERAPY
     Dosage: LONG-TERM USE
  2. TACROLIMUS. [Suspect]
     Active Substance: TACROLIMUS
     Indication: IMMUNOSUPPRESSANT DRUG THERAPY
     Dosage: LONG-TERM USE

REACTIONS (6)
  - Decreased appetite [Recovering/Resolving]
  - Enterococcal infection [Recovering/Resolving]
  - Pneumonia klebsiella [Recovering/Resolving]
  - Weight decreased [Recovering/Resolving]
  - Acute kidney injury [Recovering/Resolving]
  - Malacoplakia gastrointestinal [Recovering/Resolving]
